FAERS Safety Report 17167952 (Version 1)
Quarter: 2019Q4

REPORT INFORMATION
  Report Type: Spontaneous
  Country: FI (occurrence: FI)
  Receive Date: 20191218
  Receipt Date: 20191218
  Transmission Date: 20200122
  Serious: Yes (Other)
  Sender: FDA-Public Use
  Company Number: FI-TEVA-2019-FI-1152258

PATIENT
  Age: 53 Year
  Sex: Female

DRUGS (3)
  1. LOSATRIX [Suspect]
     Active Substance: LOSARTAN POTASSIUM
     Indication: HYPERTENSION
     Route: 048
     Dates: start: 2016
  2. INNOVAIR [Concomitant]
     Active Substance: BECLOMETHASONE DIPROPIONATE\FORMOTEROL
     Indication: ASTHMA
     Dosage: 2,DF,DAILY , 2 DOSAGE FORMS 1 DAYS
     Route: 055
     Dates: start: 201806, end: 201905
  3. DESLORATADINE. [Concomitant]
     Active Substance: DESLORATADINE
     Indication: RHINITIS ALLERGIC
     Dosage: 5,MG,DAILY , 5 MG 1 DAYS
     Route: 048
     Dates: start: 2014

REACTIONS (3)
  - Speech disorder [Recovered/Resolved]
  - Cough [Recovered/Resolved]
  - Throat tightness [Recovered/Resolved]

NARRATIVE: CASE EVENT DATE: 2016
